FAERS Safety Report 17983343 (Version 2)
Quarter: 2020Q3

REPORT INFORMATION
  Report Type: Spontaneous
  Country: PH (occurrence: PH)
  Receive Date: 20200706
  Receipt Date: 20200725
  Transmission Date: 20201103
  Serious: Yes (Death, Hospitalization)
  Sender: FDA-Public Use
  Company Number: NVSC2020PH189394

PATIENT
  Age: 10 Year
  Sex: Female

DRUGS (3)
  1. DESFERAL [Suspect]
     Active Substance: DEFEROXAMINE MESYLATE
     Indication: THALASSAEMIA BETA
     Dosage: 6 DF, QW (EVERY WEEK 6 VIALS WITH INTERVALS)
     Route: 065
     Dates: start: 2013
  2. DEXTROSE. [Concomitant]
     Active Substance: DEXTROSE
     Indication: BLOOD IRON INCREASED
     Dosage: UNK
     Route: 065
  3. VITAMINS [Concomitant]
     Active Substance: VITAMINS
     Indication: PRODUCT USED FOR UNKNOWN INDICATION
     Dosage: UNK
     Route: 065

REACTIONS (10)
  - Obstructive airways disorder [Not Recovered/Not Resolved]
  - Abdominal pain [Not Recovered/Not Resolved]
  - Cardiac failure [Fatal]
  - Dyspepsia [Not Recovered/Not Resolved]
  - Cardiogenic shock [Fatal]
  - Thalassaemia [Fatal]
  - Lip discolouration [Unknown]
  - Chromaturia [Unknown]
  - Urine odour abnormal [Unknown]
  - Dyspnoea [Unknown]

NARRATIVE: CASE EVENT DATE: 20200614
